FAERS Safety Report 8531460-2 (Version None)
Quarter: 2012Q3

REPORT INFORMATION
  Report Type: 
  Country: None (occurrence: None)
  Receive Date: 20120723
  Receipt Date: 20120718
  Transmission Date: 20120928
  Serious: Yes (Death, Other)
  Sender: FDA-Public Use
  Company Number: JP-FRI-1000022789

PATIENT
  Sex: Male

DRUGS (7)
  1. MEMANTINE HCL [Suspect]
     Dosage: 20 MG
     Route: 048
     Dates: start: 20110628, end: 20110713
  2. RABEPRAZOLE SODIUM [Concomitant]
     Dosage: 10 MG
     Route: 048
  3. LENDORMIN D [Suspect]
     Dosage: 0.25 MG
     Route: 048
     Dates: end: 20110713
  4. MEMANTINE HCL [Suspect]
     Dosage: 10 MG
     Route: 048
     Dates: start: 20110601, end: 20110627
  5. SPIRONOLACTONE [Concomitant]
     Dosage: 25 MG
     Route: 048
  6. FUROSEMIDE [Concomitant]
     Dosage: 20 MG
     Route: 048
  7. MEMANTINE HCL [Suspect]
     Indication: DEMENTIA ALZHEIMER'S TYPE
     Dosage: 5 MG
     Route: 048
     Dates: start: 20110615, end: 20110601

REACTIONS (3)
  - SOMNOLENCE [None]
  - DYSPHAGIA [None]
  - DRUG PRESCRIBING ERROR [None]
